FAERS Safety Report 4359558-3 (Version None)
Quarter: 2004Q2

REPORT INFORMATION
  Report Type: 
  Country: None (occurrence: None)
  Receive Date: 20040517
  Receipt Date: 20040517
  Transmission Date: 20050107
  Serious: Yes (Hospitalization)
  Sender: FDA-Public Use
  Company Number: None

PATIENT
  Sex: Male
  Weight: 68.0396 kg

DRUGS (5)
  1. CLOZAPINE [Suspect]
     Indication: SCHIZOPHRENIA, PARANOID TYPE
     Dosage: 400 MG QD ORAL
     Route: 048
     Dates: start: 20020501, end: 20040512
  2. TRAMADOL HCL [Suspect]
     Indication: PAIN
     Dosage: 50MG BID ORAL
     Route: 048
     Dates: start: 20040505, end: 20040511
  3. IBUPROFEN [Concomitant]
  4. VALPROIC ACID [Concomitant]
  5. PROPRANOLOL [Concomitant]

REACTIONS (6)
  - DIZZINESS [None]
  - GAIT DISTURBANCE [None]
  - MYOCLONUS [None]
  - NAUSEA [None]
  - PALLOR [None]
  - TONIC CLONIC MOVEMENTS [None]
